FAERS Safety Report 9912657 (Version 2)
Quarter: 2014Q1

REPORT INFORMATION
  Report Type: Spontaneous
  Country: US (occurrence: US)
  Receive Date: 20140220
  Receipt Date: 20140220
  Transmission Date: 20141002
  Serious: Yes (Hospitalization)
  Sender: FDA-Public Use
  Company Number: US-BEH-2014040105

PATIENT
  Age: 73 Year
  Sex: Female

DRUGS (2)
  1. ZEMAIRA [Suspect]
     Indication: ALPHA-1 ANTI-TRYPSIN DEFICIENCY
     Dosage: ??-DEC-2013
  2. ZEMAIRA [Suspect]
     Dosage: 09-FEB-2014

REACTIONS (6)
  - Catheter site inflammation [Unknown]
  - Device related infection [Unknown]
  - Catheter site extravasation [Unknown]
  - Feeling cold [Unknown]
  - Fatigue [Unknown]
  - Hypersomnia [Unknown]
